FAERS Safety Report 17070506 (Version 2)
Quarter: 2020Q4

REPORT INFORMATION
  Report Type: Other
  Country: GB (occurrence: GB)
  Receive Date: 20191125
  Receipt Date: 20201015
  Transmission Date: 20210113
  Serious: Yes (Hospitalization)
  Sender: FDA-Public Use
  Company Number: GB-LEADING PHARMA, LLC-2077163

PATIENT
  Age: 31 Year
  Sex: Female

DRUGS (1)
  1. GLYCOPYRROLATE. [Suspect]
     Active Substance: GLYCOPYRROLATE
     Indication: BRADYCARDIA
     Route: 042

REACTIONS (5)
  - Acute pulmonary oedema [Unknown]
  - Hypertension [Unknown]
  - Tachycardia [Unknown]
  - Headache [Unknown]
  - Stress cardiomyopathy [Recovering/Resolving]
